APPROVED DRUG PRODUCT: METAPROTERENOL SULFATE
Active Ingredient: METAPROTERENOL SULFATE
Strength: 20MG
Dosage Form/Route: TABLET;ORAL
Application: A072055 | Product #001
Applicant: AMERICAN THERAPEUTICS INC
Approved: Jun 23, 1988 | RLD: No | RS: No | Type: DISCN